FAERS Safety Report 10730601 (Version 1)
Quarter: 2015Q1

REPORT INFORMATION
  Report Type: Spontaneous
  Country: FR (occurrence: FR)
  Receive Date: 20150122
  Receipt Date: 20150122
  Transmission Date: 20150721
  Serious: Yes (Death)
  Sender: FDA-Public Use
  Company Number: CHPA2014FR006650

PATIENT
  Age: 85 Year
  Sex: Female
  Weight: 48 kg

DRUGS (13)
  1. RENUTRYL [Concomitant]
     Dosage: UNK
     Dates: start: 20140414
  2. SCOPODERM TTS [Suspect]
     Active Substance: SCOPOLAMINE
     Indication: OFF LABEL USE
     Dosage: 1 DF, Q72H
     Route: 065
     Dates: start: 201404
  3. LAMALINE [Concomitant]
     Active Substance: ACETAMINOPHEN\CAFFEINE\OPIUM
     Dosage: UNK
     Dates: start: 201201
  4. BICARBONATE [Concomitant]
     Active Substance: BICARBONATE ION
     Dosage: UNK
     Dates: start: 201310
  5. SCOPODERM TTS [Suspect]
     Active Substance: SCOPOLAMINE
     Dosage: UNK
     Dates: start: 20140719
  6. LOXEN [Concomitant]
     Active Substance: NICARDIPINE HYDROCHLORIDE
     Dosage: UNK
     Dates: start: 2009
  7. MOVICOL                            /01749801/ [Concomitant]
     Dosage: UNK
     Dates: start: 2009
  8. KARDEGIC [Concomitant]
     Active Substance: ASPIRIN LYSINE
     Dosage: UNK
     Dates: start: 2009
  9. SCOPODERM TTS [Suspect]
     Active Substance: SCOPOLAMINE
     Indication: BRONCHIAL OBSTRUCTION
     Dosage: 1 DF, Q72H
     Route: 062
     Dates: start: 20131216
  10. UVEDOSE [Concomitant]
     Active Substance: CHOLECALCIFEROL
  11. LORAZEPAM. [Concomitant]
     Active Substance: LORAZEPAM
     Dosage: UNK
     Dates: start: 2009
  12. DOLIPRANE [Concomitant]
     Active Substance: ACETAMINOPHEN
     Dosage: UNK
     Dates: start: 2009
  13. ECLARAN [Concomitant]
     Dosage: UNK
     Dates: start: 20140404

REACTIONS (3)
  - Sputum increased [Unknown]
  - Drug ineffective for unapproved indication [Unknown]
  - Death [Fatal]

NARRATIVE: CASE EVENT DATE: 20140720
